FAERS Safety Report 25529149 (Version 2)
Quarter: 2025Q3

REPORT INFORMATION
  Report Type: Spontaneous
  Country: CN (occurrence: CN)
  Receive Date: 20250708
  Receipt Date: 20250710
  Transmission Date: 20251021
  Serious: Yes (Other)
  Sender: MYLAN
  Company Number: CN-MYLANLABS-2025M1055200

PATIENT
  Age: 52 Year
  Sex: Female
  Weight: 64 kg

DRUGS (28)
  1. SILDENAFIL [Suspect]
     Active Substance: SILDENAFIL
     Indication: Pulmonary arterial hypertension
     Dosage: 25 MILLIGRAM, TID
     Dates: start: 201804
  2. SILDENAFIL [Suspect]
     Active Substance: SILDENAFIL
     Dosage: 25 MILLIGRAM, TID
     Route: 065
     Dates: start: 201804
  3. SILDENAFIL [Suspect]
     Active Substance: SILDENAFIL
     Dosage: 25 MILLIGRAM, TID
     Route: 065
     Dates: start: 201804
  4. SILDENAFIL [Suspect]
     Active Substance: SILDENAFIL
     Dosage: 25 MILLIGRAM, TID
     Dates: start: 201804
  5. BOSENTAN [Suspect]
     Active Substance: BOSENTAN
     Indication: Pulmonary arterial hypertension
     Dosage: 62.5 MILLIGRAM, BID
     Dates: start: 20181205, end: 20181216
  6. BOSENTAN [Suspect]
     Active Substance: BOSENTAN
     Dosage: 62.5 MILLIGRAM, BID
     Route: 065
     Dates: start: 20181205, end: 20181216
  7. BOSENTAN [Suspect]
     Active Substance: BOSENTAN
     Dosage: 62.5 MILLIGRAM, BID
     Route: 065
     Dates: start: 20181205, end: 20181216
  8. BOSENTAN [Suspect]
     Active Substance: BOSENTAN
     Dosage: 62.5 MILLIGRAM, BID
     Dates: start: 20181205, end: 20181216
  9. AMLODIPINE [Suspect]
     Active Substance: AMLODIPINE BESYLATE
     Indication: Pulmonary arterial hypertension
     Dosage: 1.25 MILLIGRAM, QD
     Route: 065
     Dates: start: 201805
  10. AMLODIPINE [Suspect]
     Active Substance: AMLODIPINE BESYLATE
     Dosage: 1.25 MILLIGRAM, QD
     Dates: start: 201805
  11. AMLODIPINE [Suspect]
     Active Substance: AMLODIPINE BESYLATE
     Dosage: 1.25 MILLIGRAM, QD
     Dates: start: 201805
  12. AMLODIPINE [Suspect]
     Active Substance: AMLODIPINE BESYLATE
     Dosage: 1.25 MILLIGRAM, QD
     Route: 065
     Dates: start: 201805
  13. AMLODIPINE [Suspect]
     Active Substance: AMLODIPINE BESYLATE
     Dosage: 2.5 MILLIGRAM, QD
     Route: 065
     Dates: start: 201805, end: 20181205
  14. AMLODIPINE [Suspect]
     Active Substance: AMLODIPINE BESYLATE
     Dosage: 2.5 MILLIGRAM, QD
     Dates: start: 201805, end: 20181205
  15. AMLODIPINE [Suspect]
     Active Substance: AMLODIPINE BESYLATE
     Dosage: 2.5 MILLIGRAM, QD
     Dates: start: 201805, end: 20181205
  16. AMLODIPINE [Suspect]
     Active Substance: AMLODIPINE BESYLATE
     Dosage: 2.5 MILLIGRAM, QD
     Route: 065
     Dates: start: 201805, end: 20181205
  17. HYDROCHLOROTHIAZIDE [Suspect]
     Active Substance: HYDROCHLOROTHIAZIDE
     Indication: Pulmonary arterial hypertension
     Dosage: 25 MILLIGRAM, QD
     Dates: start: 201804, end: 20181205
  18. HYDROCHLOROTHIAZIDE [Suspect]
     Active Substance: HYDROCHLOROTHIAZIDE
     Dosage: 25 MILLIGRAM, QD
     Route: 065
     Dates: start: 201804, end: 20181205
  19. HYDROCHLOROTHIAZIDE [Suspect]
     Active Substance: HYDROCHLOROTHIAZIDE
     Dosage: 25 MILLIGRAM, QD
     Route: 065
     Dates: start: 201804, end: 20181205
  20. HYDROCHLOROTHIAZIDE [Suspect]
     Active Substance: HYDROCHLOROTHIAZIDE
     Dosage: 25 MILLIGRAM, QD
     Dates: start: 201804, end: 20181205
  21. WARFARIN [Suspect]
     Active Substance: WARFARIN
     Indication: Pulmonary arterial hypertension
     Dosage: 3 MILLIGRAM, QD
     Dates: start: 201805, end: 20181216
  22. WARFARIN [Suspect]
     Active Substance: WARFARIN
     Dosage: 3 MILLIGRAM, QD
     Route: 065
     Dates: start: 201805, end: 20181216
  23. WARFARIN [Suspect]
     Active Substance: WARFARIN
     Dosage: 3 MILLIGRAM, QD
     Route: 065
     Dates: start: 201805, end: 20181216
  24. WARFARIN [Suspect]
     Active Substance: WARFARIN
     Dosage: 3 MILLIGRAM, QD
     Dates: start: 201805, end: 20181216
  25. SPIRONOLACTONE [Suspect]
     Active Substance: SPIRONOLACTONE
     Indication: Pulmonary arterial hypertension
     Dosage: 20 MILLIGRAM, QD
     Dates: start: 201805, end: 20181205
  26. SPIRONOLACTONE [Suspect]
     Active Substance: SPIRONOLACTONE
     Dosage: 20 MILLIGRAM, QD
     Route: 065
     Dates: start: 201805, end: 20181205
  27. SPIRONOLACTONE [Suspect]
     Active Substance: SPIRONOLACTONE
     Dosage: 20 MILLIGRAM, QD
     Route: 065
     Dates: start: 201805, end: 20181205
  28. SPIRONOLACTONE [Suspect]
     Active Substance: SPIRONOLACTONE
     Dosage: 20 MILLIGRAM, QD
     Dates: start: 201805, end: 20181205

REACTIONS (2)
  - Drug-induced liver injury [Recovered/Resolved]
  - Off label use [Unknown]

NARRATIVE: CASE EVENT DATE: 20180501
